FAERS Safety Report 8230472-6 (Version None)
Quarter: 2012Q1

REPORT INFORMATION
  Report Type: 
  Country: None (occurrence: None)
  Receive Date: 20120323
  Receipt Date: 20120319
  Transmission Date: 20120608
  Serious: Yes (Other)
  Sender: FDA-Public Use
  Company Number: US-BAYER-2011-119003

PATIENT
  Age: 39 Year
  Sex: Female
  Weight: 74.83 kg

DRUGS (2)
  1. YAZ [Suspect]
     Dosage: UNK
     Route: 048
     Dates: start: 20060101, end: 20100101
  2. YASMIN [Suspect]
     Dosage: UNK
     Route: 048
     Dates: start: 20040101, end: 20050101

REACTIONS (6)
  - EMOTIONAL DISTRESS [None]
  - INJURY [None]
  - PAIN [None]
  - GALLBLADDER DISORDER [None]
  - DIARRHOEA [None]
  - NAUSEA [None]
